FAERS Safety Report 7587018-5 (Version None)
Quarter: 2011Q3

REPORT INFORMATION
  Report Type: 
  Country: None (occurrence: None)
  Receive Date: 20110701
  Receipt Date: 20110622
  Transmission Date: 20111222
  Serious: Yes (Other)
  Sender: FDA-Public Use
  Company Number: PHFR2011GB03128

PATIENT
  Sex: Female

DRUGS (1)
  1. CLOZAPINE [Suspect]
     Indication: SCHIZOPHRENIA
     Route: 048
     Dates: start: 19991111, end: 20020101

REACTIONS (8)
  - DYSPNOEA [None]
  - CHEST PAIN [None]
  - WITHDRAWAL SYNDROME [None]
  - INSOMNIA [None]
  - PSYCHOSOMATIC DISEASE [None]
  - PSYCHOTIC DISORDER [None]
  - NAUSEA [None]
  - VOMITING [None]
